FAERS Safety Report 7369679-9 (Version None)
Quarter: 2011Q1

REPORT INFORMATION
  Report Type: 
  Country: None (occurrence: None)
  Receive Date: 20110323
  Receipt Date: 20110315
  Transmission Date: 20110831
  Serious: Yes (Other)
  Sender: FDA-Public Use
  Company Number: FR-BRISTOL-MYERS SQUIBB COMPANY-15594310

PATIENT
  Age: 58 Year
  Sex: Female
  Weight: 58 kg

DRUGS (2)
  1. ERBITUX [Suspect]
     Indication: COLON CANCER
     Dosage: NO OF COURSE:6
     Route: 042
     Dates: start: 20090522, end: 20110215
  2. CAMPTOSAR [Suspect]
     Indication: COLON CANCER
     Dosage: NO OF COURSE:6
     Route: 042
     Dates: start: 20090522, end: 20110215

REACTIONS (2)
  - OPTIC NEURITIS [None]
  - TOXIC SKIN ERUPTION [None]
